FAERS Safety Report 26126839 (Version 1)
Quarter: 2025Q4

REPORT INFORMATION
  Report Type: Spontaneous
  Country: CN (occurrence: CN)
  Receive Date: 20251205
  Receipt Date: 20251205
  Transmission Date: 20260117
  Serious: Yes (Hospitalization, Other)
  Sender: ALEXION PHARMACEUTICALS
  Company Number: CN-ASTRAZENECA-202512CHN000867CN

PATIENT
  Age: 74 Year
  Sex: Male

DRUGS (2)
  1. BUDESONIDE\FORMOTEROL [Suspect]
     Active Substance: BUDESONIDE\FORMOTEROL
     Dosage: 2 MILLIGRAM, BID
     Dates: start: 20251123, end: 20251125
  2. BRICANYL [Suspect]
     Active Substance: TERBUTALINE SULFATE
     Dosage: 5 MILLIGRAM, BID
     Dates: start: 20251123, end: 20251125

REACTIONS (4)
  - Chest discomfort [Recovering/Resolving]
  - Tachypnoea [Recovering/Resolving]
  - Cold sweat [Recovering/Resolving]
  - Heart rate increased [Recovering/Resolving]

NARRATIVE: CASE EVENT DATE: 20251125
